FAERS Safety Report 19615439 (Version 6)
Quarter: 2023Q2

REPORT INFORMATION
  Report Type: Spontaneous
  Country: PT (occurrence: PT)
  Receive Date: 20210727
  Receipt Date: 20230623
  Transmission Date: 20230722
  Serious: Yes (Hospitalization, Other)
  Sender: FDA-Public Use
  Company Number: PT-MYLANLABS-2021M1005230

PATIENT
  Age: 53 Year
  Sex: Female

DRUGS (4)
  1. IBUPROFEN [Interacting]
     Active Substance: IBUPROFEN
     Indication: Arthralgia
     Dosage: 600 MILLIGRAM, Q8H
     Route: 048
  2. IBUPROFEN [Interacting]
     Active Substance: IBUPROFEN
     Dosage: 1800 MILLIGRAM DAILY; 8-8HOURS
     Route: 048
  3. LITHIUM CARBONATE [Interacting]
     Active Substance: LITHIUM CARBONATE
     Indication: Bipolar disorder
     Dosage: 400 MILLIGRAM, BID
     Route: 048
  4. LITHIUM CARBONATE [Interacting]
     Active Substance: LITHIUM CARBONATE
     Indication: Arthralgia

REACTIONS (9)
  - Toxicity to various agents [Unknown]
  - Antipsychotic drug level above therapeutic [Recovered/Resolved]
  - Labelled drug-drug interaction medication error [Recovered/Resolved]
  - Drug interaction [Recovered/Resolved]
  - Disorientation [Unknown]
  - Dyskinesia [Unknown]
  - Consciousness fluctuating [Unknown]
  - Gait disturbance [Unknown]
  - Dysarthria [Unknown]
